FAERS Safety Report 6213296-0 (Version None)
Quarter: 2009Q2

REPORT INFORMATION
  Report Type: 
  Country: None (occurrence: None)
  Receive Date: 20090603
  Receipt Date: 20090521
  Transmission Date: 20091009
  Serious: Yes (Hospitalization, Other)
  Sender: FDA-Public Use
  Company Number: US-ELI_LILLY_AND_COMPANY-US200807005373

PATIENT
  Sex: Male

DRUGS (8)
  1. ZYPREXA [Suspect]
     Indication: SCHIZOPHRENIA, PARANOID TYPE
     Dates: start: 19990101
  2. ZYPREXA [Interacting]
     Dosage: 10 MG, DAILY (1/D)
  3. ZYPREXA [Interacting]
     Dosage: 15 MG, DAILY (1/D)
     Dates: start: 20080715
  4. ZYPREXA [Interacting]
     Dosage: 1.875 MG, DAILY (1/D)
  5. TRILEPTAL [Concomitant]
  6. SEROQUEL [Concomitant]
  7. ATIVAN [Concomitant]
  8. PROZAC [Concomitant]

REACTIONS (7)
  - ANGER [None]
  - DEPRESSION [None]
  - HOMICIDAL IDEATION [None]
  - INSOMNIA [None]
  - POTENTIATING DRUG INTERACTION [None]
  - SUICIDAL IDEATION [None]
  - WEIGHT INCREASED [None]
